FAERS Safety Report 9850194 (Version 1)
Quarter: 2013Q4

REPORT INFORMATION
  Report Type: Spontaneous
  Country: US (occurrence: None)
  Receive Date: 20131226
  Receipt Date: 20131226
  Transmission Date: 20140711
  Serious: Yes (Other)
  Sender: FDA-Public Use
  Company Number: PHEH2012US020657

PATIENT
  Age: 44 Year
  Sex: Male

DRUGS (2)
  1. DIOVAN (VALSARTAN) [Suspect]
  2. LISINOPRIL (LISINOPRIL) [Concomitant]

REACTIONS (4)
  - Blood pressure increased [None]
  - Visual impairment [None]
  - Wheezing [None]
  - Dizziness [None]
